FAERS Safety Report 12059014 (Version 1)
Quarter: 2016Q1

REPORT INFORMATION
  Report Type: Spontaneous
  Country: US (occurrence: US)
  Receive Date: 20160209
  Receipt Date: 20160209
  Transmission Date: 20160526
  Serious: No
  Sender: FDA-Public Use
  Company Number: US-AUROBINDO-AUR-APU-2015-05326

PATIENT
  Sex: Male

DRUGS (1)
  1. NAPROXEN TABLETS USP 500MG [Suspect]
     Active Substance: NAPROXEN
     Indication: ARTHRITIS
     Dosage: UNK
     Dates: start: 201412

REACTIONS (3)
  - Dysgeusia [Not Recovered/Not Resolved]
  - Malaise [Not Recovered/Not Resolved]
  - Product quality issue [Not Recovered/Not Resolved]

NARRATIVE: CASE EVENT DATE: 2015
